FAERS Safety Report 9844289 (Version 1)
Quarter: 2014Q1

REPORT INFORMATION
  Report Type: Spontaneous
  Country: JP (occurrence: JP)
  Receive Date: 20140127
  Receipt Date: 20140127
  Transmission Date: 20141002
  Serious: Yes (Death, Other)
  Sender: FDA-Public Use
  Company Number: JP-ACCORD-021381

PATIENT
  Age: 62 Year
  Sex: Male

DRUGS (4)
  1. DOCETAXEL [Suspect]
     Indication: OESOPHAGEAL CARCINOMA
     Dosage: LOW-DOSE
  2. PACLITAXEL [Suspect]
     Indication: OESOPHAGEAL CARCINOMA
  3. METHYLPREDNISOLONE [Concomitant]
     Indication: INTERSTITIAL LUNG DISEASE
  4. GANCICLOVIR [Concomitant]
     Route: 042

REACTIONS (5)
  - Peritoneal perforation [Unknown]
  - Cytomegalovirus colitis [Unknown]
  - Tracheo-oesophageal fistula [Fatal]
  - Peritonitis [Unknown]
  - Pneumonia aspiration [Fatal]
